FAERS Safety Report 9157543 (Version 4)
Quarter: 2013Q4

REPORT INFORMATION
  Report Type: Report from Study
  Country: JP (occurrence: JP)
  Receive Date: 20130312
  Receipt Date: 20131216
  Transmission Date: 20140711
  Serious: Yes (Hospitalization)
  Sender: FDA-Public Use
  Company Number: PHHY2013JP023547

PATIENT
  Age: 37 Year
  Sex: Female

DRUGS (4)
  1. FTY 720 [Suspect]
     Indication: RELAPSING-REMITTING MULTIPLE SCLEROSIS
     Dosage: 0.5 MG, QD
     Route: 048
     Dates: start: 20120809, end: 20120930
  2. FTY 720 [Suspect]
     Dosage: 0.5 MG, Q48H
     Route: 048
     Dates: start: 20121001, end: 20121013
  3. BETAFERON [Concomitant]
     Indication: RELAPSING-REMITTING MULTIPLE SCLEROSIS
     Dosage: 8 MIU, Q48H
     Route: 058
     Dates: end: 20120806
  4. BETAFERON [Concomitant]
     Dosage: 8 MIU, Q48H
     Route: 058
     Dates: start: 201210

REACTIONS (2)
  - Convulsion [Recovered/Resolved]
  - Lymphopenia [Recovered/Resolved]
